FAERS Safety Report 7286637-3 (Version None)
Quarter: 2011Q1

REPORT INFORMATION
  Report Type: 
  Country: None (occurrence: None)
  Receive Date: 20110210
  Receipt Date: 20110202
  Transmission Date: 20110831
  Serious: Yes (Other)
  Sender: FDA-Public Use
  Company Number: FR-GILEAD-2010-0034537

PATIENT
  Sex: Female
  Weight: 65 kg

DRUGS (8)
  1. NORVIR [Concomitant]
     Dates: start: 20101001
  2. AZT [Concomitant]
  3. VIRAMUNE [Concomitant]
  4. KALETRA [Concomitant]
     Dates: end: 20101001
  5. TRUVADA [Suspect]
     Indication: HIV INFECTION
  6. TELZIR [Concomitant]
     Dates: start: 20101001
  7. FUZEON [Concomitant]
  8. COMBIVIR [Concomitant]
     Dates: start: 20101001

REACTIONS (3)
  - PREMATURE LABOUR [None]
  - PREGNANCY [None]
  - PRE-ECLAMPSIA [None]
